FAERS Safety Report 5163511-X (Version None)
Quarter: 2006Q4

REPORT INFORMATION
  Report Type: 
  Country: None (occurrence: None)
  Receive Date: 20061124
  Receipt Date: 20061112
  Transmission Date: 20070319
  Serious: Yes (Other)
  Sender: FDA-Public Use
  Company Number: 2006139378

PATIENT
  Age: 63 Year
  Sex: Female
  Weight: 53.978 kg

DRUGS (6)
  1. CHANTIX [Suspect]
     Indication: SMOKING CESSATION THERAPY
     Dosage: ORAL
     Route: 048
     Dates: start: 20061101
  2. OSCAL                              (CALCIUM CARBONATE) [Concomitant]
  3. SPIRIVA [Concomitant]
  4. LESCOL [Concomitant]
  5. NORVASC [Concomitant]
  6. FEXOFENADINE HCL [Concomitant]

REACTIONS (5)
  - APHONIA [None]
  - CHOKING [None]
  - COUGH [None]
  - FEAR [None]
  - NAUSEA [None]
